FAERS Safety Report 6151030-3 (Version None)
Quarter: 2009Q2

REPORT INFORMATION
  Report Type: 
  Country: None (occurrence: None)
  Receive Date: 20090410
  Receipt Date: 20090306
  Transmission Date: 20091009
  Serious: No
  Sender: FDA-Public Use
  Company Number: A0771849A

PATIENT
  Age: 52 Year
  Sex: Female

DRUGS (2)
  1. TYKERB [Suspect]
     Indication: BREAST CANCER
     Dosage: 1250MG TWICE PER DAY
     Route: 048
     Dates: start: 20090225, end: 20090228
  2. NO CONCURRENT MEDICATION [Concomitant]

REACTIONS (13)
  - COUGH [None]
  - DIARRHOEA [None]
  - DRY MOUTH [None]
  - EATING DISORDER [None]
  - HUNGER [None]
  - MOUTH ULCERATION [None]
  - OEDEMA MOUTH [None]
  - ORAL PAIN [None]
  - OROPHARYNGEAL PAIN [None]
  - PRURITUS [None]
  - SWELLING FACE [None]
  - THIRST [None]
  - THROAT IRRITATION [None]
